FAERS Safety Report 9837552 (Version 2)
Quarter: 2014Q1

REPORT INFORMATION
  Report Type: Report from Study
  Country: BR (occurrence: BR)
  Receive Date: 20140123
  Receipt Date: 20140217
  Transmission Date: 20141002
  Serious: Yes (Other)
  Sender: FDA-Public Use
  Company Number: PHHY2014BR005387

PATIENT
  Sex: Female
  Weight: 88 kg

DRUGS (3)
  1. SANDOSTATIN LAR [Suspect]
     Indication: ACROMEGALY
     Dosage: 1 DF (1 AMPOULE), PER MONTH
     Route: 030
  2. SANDOSTATIN LAR [Suspect]
     Dosage: 1 DF (1 AMPOULE), PER MONTH
     Route: 030
     Dates: start: 20131216
  3. DIPYRONE [Concomitant]
     Indication: HEADACHE
     Dosage: 2 DF, DAILY
     Route: 048

REACTIONS (4)
  - Osteoarthritis [Recovering/Resolving]
  - Femur fracture [Not Recovered/Not Resolved]
  - Hypertension [Recovering/Resolving]
  - Decreased appetite [Recovering/Resolving]
